FAERS Safety Report 19779505 (Version 8)
Quarter: 2023Q1

REPORT INFORMATION
  Report Type: Spontaneous
  Country: US (occurrence: US)
  Receive Date: 20210902
  Receipt Date: 20230117
  Transmission Date: 20230417
  Serious: No
  Sender: FDA-Public Use
  Company Number: US-PFIZER INC-202100994647

PATIENT
  Age: 61 Year
  Sex: Male

DRUGS (3)
  1. BOSULIF [Suspect]
     Active Substance: BOSUTINIB MONOHYDRATE
     Dosage: 100 MG, 3X/DAY
     Dates: start: 20200206
  2. BOSULIF [Suspect]
     Active Substance: BOSUTINIB MONOHYDRATE
     Dosage: 100 MG, 2X/DAY
     Route: 048
     Dates: start: 20200206
  3. BOSULIF [Suspect]
     Active Substance: BOSUTINIB MONOHYDRATE
     Dosage: 100 MG, 3X/DAY

REACTIONS (19)
  - Off label use [Unknown]
  - Constipation [Not Recovered/Not Resolved]
  - Neck pain [Not Recovered/Not Resolved]
  - Productive cough [Unknown]
  - Infection [Unknown]
  - Illness [Unknown]
  - Muscle spasms [Not Recovered/Not Resolved]
  - Hypoaesthesia [Unknown]
  - Arthralgia [Not Recovered/Not Resolved]
  - Arthropathy [Not Recovered/Not Resolved]
  - Abdominal pain upper [Unknown]
  - Back pain [Unknown]
  - Dysstasia [Unknown]
  - Cough [Unknown]
  - Sneezing [Unknown]
  - Laboratory test abnormal [Unknown]
  - Abdominal pain [Unknown]
  - Gastric disorder [Unknown]
  - Hunger [Unknown]

NARRATIVE: CASE EVENT DATE: 20200206
